FAERS Safety Report 24215186 (Version 1)
Quarter: 2024Q3

REPORT INFORMATION
  Report Type: Spontaneous
  Country: UA (occurrence: UA)
  Receive Date: 20240816
  Receipt Date: 20240816
  Transmission Date: 20241017
  Serious: Yes (Other)
  Sender: INVENTIA HEALTHCARE
  Company Number: UA-IHL-000598

PATIENT
  Age: 27 Year
  Sex: Female

DRUGS (5)
  1. OXCARBAZEPINE [Suspect]
     Active Substance: OXCARBAZEPINE
     Indication: Schizoaffective disorder bipolar type
     Route: 065
     Dates: start: 201911, end: 202005
  2. OXCARBAZEPINE [Suspect]
     Active Substance: OXCARBAZEPINE
     Indication: Schizoaffective disorder bipolar type
     Route: 065
     Dates: start: 202006, end: 202101
  3. OXCARBAZEPINE [Suspect]
     Active Substance: OXCARBAZEPINE
     Indication: Schizoaffective disorder bipolar type
     Route: 065
     Dates: start: 202201, end: 202203
  4. VALPROIC ACID [Suspect]
     Active Substance: VALPROIC ACID
     Indication: Schizoaffective disorder bipolar type
     Route: 065
  5. PALIPERIDONE [Suspect]
     Active Substance: PALIPERIDONE
     Indication: Schizoaffective disorder bipolar type
     Route: 065
     Dates: start: 201910, end: 202006

REACTIONS (8)
  - Schizoaffective disorder bipolar type [Recovered/Resolved]
  - Drug resistance [Recovered/Resolved]
  - Fatigue [Recovered/Resolved]
  - Weight increased [Recovered/Resolved]
  - Treatment noncompliance [Unknown]
  - Suicide attempt [Unknown]
  - Therapy partial responder [Unknown]
  - Drug intolerance [Unknown]

NARRATIVE: CASE EVENT DATE: 20190101
